FAERS Safety Report 10874664 (Version 1)
Quarter: 2015Q1

REPORT INFORMATION
  Report Type: Spontaneous
  Country: US (occurrence: US)
  Receive Date: 20150227
  Receipt Date: 20150227
  Transmission Date: 20150721
  Serious: Yes (Other)
  Sender: FDA-Public Use
  Company Number: US-MYLANLABS-2015M1006442

PATIENT

DRUGS (2)
  1. TOPOTECAN [Suspect]
     Active Substance: TOPOTECAN\TOPOTECAN HYDROCHLORIDE
     Indication: RETINOBLASTOMA
     Dosage: UNK UNK, CYCLE, 1 MONTH INTERVALS, 4 CYCLES
  2. MELPHALAN [Suspect]
     Active Substance: MELPHALAN
     Indication: RETINOBLASTOMA
     Dosage: UNK, CYCLE, 1 MONTH INTERVALS, 4 CYCLES

REACTIONS (3)
  - Scleritis [Unknown]
  - Ischaemia [Unknown]
  - Enophthalmos [Unknown]
